FAERS Safety Report 20653157 (Version 3)
Quarter: 2022Q2

REPORT INFORMATION
  Report Type: Spontaneous
  Country: GB (occurrence: GB)
  Receive Date: 20220330
  Receipt Date: 20220526
  Transmission Date: 20220721
  Serious: Yes (Hospitalization, Other)
  Sender: FDA-Public Use
  Company Number: GB-NOVARTISPH-NVSC2022GB069653

PATIENT
  Age: 69 Year
  Sex: Female

DRUGS (7)
  1. AMOXICILLIN\CLAVULANATE POTASSIUM [Suspect]
     Active Substance: AMOXICILLIN\CLAVULANATE POTASSIUM
     Indication: Lower respiratory tract infection
     Dosage: UNK
     Route: 065
     Dates: start: 20220203, end: 20220310
  2. DABRAFENIB [Suspect]
     Active Substance: DABRAFENIB
     Indication: Adverse drug reaction
     Dosage: UNK
     Route: 065
     Dates: start: 20211220, end: 20220307
  3. TRAMETINIB [Suspect]
     Active Substance: TRAMETINIB
     Indication: Adverse drug reaction
     Dosage: UNK
     Route: 065
     Dates: start: 20211220, end: 20220307
  4. EZETIMIBE [Concomitant]
     Active Substance: EZETIMIBE
     Indication: Type IIa hyperlipidaemia
     Dosage: UNK
     Route: 065
     Dates: end: 20220307
  5. SIMVASTATIN [Concomitant]
     Active Substance: SIMVASTATIN
     Indication: Type IIa hyperlipidaemia
     Dosage: UNK
     Route: 065
     Dates: end: 20220307
  6. FELODIPINE [Concomitant]
     Active Substance: FELODIPINE
     Indication: Hypertension
     Dosage: UNK
     Route: 065
  7. RAMIPRIL [Concomitant]
     Active Substance: RAMIPRIL
     Indication: Hypertension
     Dosage: UNK
     Route: 065

REACTIONS (3)
  - Liver injury [Recovering/Resolving]
  - Yellow skin [Unknown]
  - Chromaturia [Unknown]

NARRATIVE: CASE EVENT DATE: 20220307
